FAERS Safety Report 19272598 (Version 2)
Quarter: 2021Q2

REPORT INFORMATION
  Report Type: Report from Study
  Country: None (occurrence: BR)
  Receive Date: 20210519
  Receipt Date: 20210605
  Transmission Date: 20210717
  Serious: Yes (Disabling, Other)
  Sender: FDA-Public Use
  Company Number: BR-ABBVIE-21K-020-3907349-00

PATIENT
  Age: 38 Year
  Sex: Male
  Weight: 105 kg

DRUGS (3)
  1. AZATHIOPRINE. [Concomitant]
     Active Substance: AZATHIOPRINE
     Indication: UVEITIS
     Dosage: UNSPECIFIED DOSE
     Route: 048
     Dates: start: 202010
  2. HUMIRA [Suspect]
     Active Substance: ADALIMUMAB
     Route: 058
     Dates: start: 20210519
  3. HUMIRA [Suspect]
     Active Substance: ADALIMUMAB
     Indication: UVEITIS
     Dosage: STOPPED BEFORE 24 MAR 2021
     Route: 058
     Dates: start: 202012, end: 2021

REACTIONS (5)
  - Visual impairment [Recovering/Resolving]
  - Vitritis [Unknown]
  - Optic neuritis [Unknown]
  - Eye inflammation [Recovering/Resolving]
  - Retinal vasculitis [Unknown]

NARRATIVE: CASE EVENT DATE: 202104
